FAERS Safety Report 9998294 (Version 2)
Quarter: 2014Q1

REPORT INFORMATION
  Report Type: Spontaneous
  Country: US (occurrence: US)
  Receive Date: 20140312
  Receipt Date: 20140312
  Transmission Date: 20141002
  Serious: Yes (Death)
  Sender: FDA-Public Use
  Company Number: US-009507513-1201USA02197

PATIENT
  Age: 45 Year
  Sex: Female

DRUGS (10)
  1. SINGULAIR [Suspect]
     Dosage: UNK
     Route: 048
  2. PHENOBARBITAL [Suspect]
     Dosage: UNK
     Route: 048
     Dates: end: 2010
  3. DIAZEPAM [Suspect]
     Dosage: UNK
     Route: 048
     Dates: end: 2010
  4. TOPIRAMATE [Suspect]
     Dosage: UNK
     Route: 048
     Dates: end: 2010
  5. GABAPENTIN [Suspect]
     Dosage: UNK
     Route: 048
     Dates: end: 2010
  6. TEMAZEPAM [Suspect]
     Route: 048
  7. CLONAZEPAM [Suspect]
     Route: 048
  8. NAPROXEN [Suspect]
     Dosage: UNK
     Route: 048
     Dates: end: 2010
  9. PROGESTIN [Suspect]
     Dosage: UNK
     Dates: end: 2010
  10. SPIRONOLACTONE [Suspect]
     Route: 048

REACTIONS (2)
  - Completed suicide [Fatal]
  - Poisoning [Fatal]
